FAERS Safety Report 4935817-8 (Version None)
Quarter: 2006Q1

REPORT INFORMATION
  Report Type: 
  Country: None (occurrence: None)
  Receive Date: 20060302
  Receipt Date: 20060210
  Transmission Date: 20060701
  Serious: Yes (Hospitalization)
  Sender: FDA-Public Use
  Company Number: USA0510109789

PATIENT
  Age: 43 Year
  Sex: Female

DRUGS (6)
  1. FORTEO [Suspect]
     Indication: OSTEOPOROSIS
     Dates: start: 20050301
  2. FORTEO [Suspect]
     Indication: OSTEOPOROSIS
     Dates: start: 20050301
  3. FORTEO [Suspect]
  4. FORTEO PEN, 250MCG/ML (3ML) (FORTEO PEN 250MCG/ML (3ML)) PEN, DISPOSAB [Concomitant]
  5. FORTEO [Concomitant]
  6. FORTEO [Concomitant]

REACTIONS (10)
  - ASTHENIA [None]
  - COLLAPSE OF LUNG [None]
  - FEELING ABNORMAL [None]
  - IATROGENIC INJURY [None]
  - INTENTIONAL DRUG MISUSE [None]
  - MUSCULAR WEAKNESS [None]
  - PHARMACEUTICAL PRODUCT COMPLAINT [None]
  - PNEUMONIA [None]
  - PROCEDURAL COMPLICATION [None]
  - SOMNOLENCE [None]
